FAERS Safety Report 11198420 (Version 1)
Quarter: 2015Q2

REPORT INFORMATION
  Report Type: Spontaneous
  Country: US (occurrence: US)
  Receive Date: 20150618
  Receipt Date: 20150618
  Transmission Date: 20150821
  Serious: Yes (Other)
  Sender: FDA-Public Use
  Company Number: US-ROCHE-1593762

PATIENT
  Sex: Female

DRUGS (1)
  1. XOLAIR [Suspect]
     Active Substance: OMALIZUMAB
     Indication: ASTHMA
     Route: 058

REACTIONS (6)
  - Oropharyngeal pain [Unknown]
  - Mouth swelling [Unknown]
  - Paraesthesia oral [Unknown]
  - Swollen tongue [Unknown]
  - Palatal swelling [Unknown]
  - Dysphagia [Unknown]
